FAERS Safety Report 17740643 (Version 1)
Quarter: 2020Q2

REPORT INFORMATION
  Report Type: Spontaneous
  Country: US (occurrence: US)
  Receive Date: 20200504
  Receipt Date: 20200504
  Transmission Date: 20200714
  Serious: No
  Sender: FDA-Public Use
  Company Number: US-SHIRE-US202014883

PATIENT
  Sex: Female

DRUGS (2)
  1. AGRYLIN [Suspect]
     Active Substance: ANAGRELIDE HYDROCHLORIDE
     Indication: PLATELET COUNT INCREASED
  2. AGRYLIN [Suspect]
     Active Substance: ANAGRELIDE HYDROCHLORIDE
     Indication: THROMBOCYTOSIS
     Dosage: 0.5 MILLIGRAM, 2X/DAY:BID(MORNING AND EVENING)
     Route: 065
     Dates: start: 20200425

REACTIONS (4)
  - Inability to afford medication [Unknown]
  - Platelet count increased [Unknown]
  - Anaemia [Unknown]
  - Product dose omission [Unknown]
